FAERS Safety Report 6169088-4 (Version None)
Quarter: 2009Q2

REPORT INFORMATION
  Report Type: 
  Country: None (occurrence: None)
  Receive Date: 20090427
  Receipt Date: 20090415
  Transmission Date: 20091009
  Serious: Yes (Other)
  Sender: FDA-Public Use
  Company Number: US-PFIZER INC-2009199866

PATIENT
  Sex: Female

DRUGS (2)
  1. XALATAN [Suspect]
  2. LUMIGAN [Suspect]

REACTIONS (3)
  - CATARACT [None]
  - EYELASH DISCOLOURATION [None]
  - GROWTH OF EYELASHES [None]
